FAERS Safety Report 14703492 (Version 4)
Quarter: 2018Q2

REPORT INFORMATION
  Report Type: Spontaneous
  Country: US (occurrence: US)
  Receive Date: 20180402
  Receipt Date: 20180629
  Transmission Date: 20180711
  Serious: Yes (Death, Hospitalization, Other)
  Sender: FDA-Public Use
  Company Number: PHEH2018US011870

PATIENT
  Age: 83 Year
  Sex: Male
  Weight: 93.8 kg

DRUGS (14)
  1. RANEXA [Concomitant]
     Active Substance: RANOLAZINE
     Indication: PRODUCT USED FOR UNKNOWN INDICATION
     Dosage: 1000 MG, BID
     Route: 065
  2. ATORVASTATIN [Concomitant]
     Active Substance: ATORVASTATIN
     Indication: CORONARY ARTERY DISEASE
     Dosage: 40 MG, QD
     Route: 048
  3. FLUOROURACIL. [Concomitant]
     Active Substance: FLUOROURACIL
     Indication: PRODUCT USED FOR UNKNOWN INDICATION
     Route: 065
  4. MITOMYCIN. [Concomitant]
     Active Substance: MITOMYCIN
     Indication: PRODUCT USED FOR UNKNOWN INDICATION
     Route: 065
  5. IMDUR [Suspect]
     Active Substance: ISOSORBIDE MONONITRATE
     Indication: PRODUCT USED FOR UNKNOWN INDICATION
     Dosage: 30 MG, QD
     Route: 048
     Dates: start: 20180306
  6. ASPIRIN. [Concomitant]
     Active Substance: ASPIRIN
     Indication: CORONARY ARTERY DISEASE
     Dosage: 81 MG, QD
     Route: 065
  7. LASIX [Suspect]
     Active Substance: FUROSEMIDE
     Indication: PRODUCT USED FOR UNKNOWN INDICATION
     Dosage: 20 MG, QD
     Route: 048
  8. XARELTO [Concomitant]
     Active Substance: RIVAROXABAN
     Indication: PRODUCT USED FOR UNKNOWN INDICATION
     Dosage: 20 MG, QD (9 PM)
     Route: 048
  9. ENTRESTO [Suspect]
     Active Substance: SACUBITRIL\VALSARTAN
     Indication: CARDIAC FAILURE
     Dosage: 50 MG (24/26 MG), BID
     Route: 048
     Dates: end: 20180306
  10. IMDUR [Suspect]
     Active Substance: ISOSORBIDE MONONITRATE
     Dosage: UNK
     Route: 065
     Dates: start: 20180316
  11. SYNTHROID [Suspect]
     Active Substance: LEVOTHYROXINE SODIUM
     Indication: PRODUCT USED FOR UNKNOWN INDICATION
     Dosage: 100 MG, QD
     Route: 048
  12. ASA [Suspect]
     Active Substance: ASPIRIN
     Indication: PRODUCT USED FOR UNKNOWN INDICATION
     Dosage: 81 NG, UNK
     Route: 048
  13. ENTRESTO [Suspect]
     Active Substance: SACUBITRIL\VALSARTAN
     Indication: CARDIAC FAILURE CHRONIC
     Dosage: 50 MG (24/26 MG), BID
     Route: 048
     Dates: start: 20171001, end: 20180215
  14. TOPROL XL [Suspect]
     Active Substance: METOPROLOL SUCCINATE
     Indication: PRODUCT USED FOR UNKNOWN INDICATION
     Dosage: 12.5 MG (9 PM), QD
     Route: 048
     Dates: start: 20180306, end: 20180318

REACTIONS (28)
  - Cardiac failure congestive [Fatal]
  - Gastrointestinal haemorrhage [Fatal]
  - Respiratory rate increased [Unknown]
  - Aspartate aminotransferase increased [Fatal]
  - Haemorrhage [Unknown]
  - Eating disorder [Unknown]
  - Hypotension [Unknown]
  - Angina pectoris [Recovered/Resolved]
  - Haemoptysis [Unknown]
  - Chest discomfort [Recovered/Resolved]
  - Atrial fibrillation [Unknown]
  - Portal vein thrombosis [Unknown]
  - Oedema peripheral [Recovered/Resolved]
  - Influenza [Unknown]
  - Blood alkaline phosphatase increased [Fatal]
  - Mitral valve incompetence [Unknown]
  - Left ventricular failure [Unknown]
  - Left ventricular dysfunction [Unknown]
  - Dizziness [Recovered/Resolved]
  - Alanine aminotransferase increased [Fatal]
  - Dyspnoea [Unknown]
  - Acute hepatic failure [Fatal]
  - Blood bilirubin increased [Fatal]
  - Hepatic enzyme increased [Fatal]
  - Cardiomyopathy [Fatal]
  - Anaemia [Fatal]
  - Feeling hot [Unknown]
  - Fatigue [Recovered/Resolved]

NARRATIVE: CASE EVENT DATE: 201802
